FAERS Safety Report 13097196 (Version 2)
Quarter: 2017Q1

REPORT INFORMATION
  Report Type: Report from Study
  Country: CO (occurrence: CO)
  Receive Date: 20170109
  Receipt Date: 20170114
  Transmission Date: 20170428
  Serious: Yes (Death, Hospitalization)
  Sender: FDA-Public Use
  Company Number: PHHY2017CO002007

PATIENT
  Sex: Male

DRUGS (2)
  1. TASIGNA [Suspect]
     Active Substance: NILOTINIB
     Indication: CHRONIC MYELOID LEUKAEMIA
     Dosage: 150 MG, QID
     Route: 048
  2. TASIGNA [Suspect]
     Active Substance: NILOTINIB
     Dosage: 150 MG, BID
     Route: 065
     Dates: start: 20161110

REACTIONS (4)
  - Cerebrovascular accident [Fatal]
  - Noninfective encephalitis [Fatal]
  - Cerebral haemorrhage [Fatal]
  - Inappropriate schedule of drug administration [Unknown]
